FAERS Safety Report 8165626-0 (Version None)
Quarter: 2012Q1

REPORT INFORMATION
  Report Type: 
  Country: None (occurrence: None)
  Receive Date: 20120103
  Receipt Date: 20111018
  Transmission Date: 20120608
  Serious: No
  Sender: FDA-Public Use
  Company Number: AE-2011-002457

PATIENT
  Age: 44 Year
  Sex: Female
  Weight: 77.1115 kg

DRUGS (7)
  1. DIOVAN [Concomitant]
  2. ZYRTEC [Concomitant]
  3. PEGASYS [Concomitant]
  4. RIBAVIRIN [Concomitant]
  5. CITALOPRAM HYDROBROMIDE [Concomitant]
  6. INCIVEK [Suspect]
     Dosage: 2250 MG (750 MG, 1 IN 8 HR), ORAL
     Route: 048
     Dates: start: 20110822
  7. ACETAMINOPHEN [Concomitant]

REACTIONS (2)
  - DRUG DOSE OMISSION [None]
  - RASH PRURITIC [None]
